FAERS Safety Report 8145007-6 (Version None)
Quarter: 2012Q1

REPORT INFORMATION
  Report Type: 
  Country: None (occurrence: None)
  Receive Date: 20120217
  Receipt Date: 20120208
  Transmission Date: 20120608
  Serious: Yes (Other)
  Sender: FDA-Public Use
  Company Number: PHHY2012IE011836

PATIENT
  Age: 7 Year
  Sex: Female

DRUGS (1)
  1. TOBI [Suspect]

REACTIONS (2)
  - PRIMARY CILIARY DYSKINESIA [None]
  - APHONIA [None]
